FAERS Safety Report 21682298 (Version 1)
Quarter: 2022Q4

REPORT INFORMATION
  Report Type: Other
  Country: US (occurrence: None)
  Receive Date: 20221205
  Receipt Date: 20221205
  Transmission Date: 20230112
  Serious: No
  Sender: FDA-Public Use
  Company Number: US-ROCHE-3228137

PATIENT
  Age: 44 Year
  Sex: Female
  Weight: 67.192 kg

DRUGS (1)
  1. OCREVUS [Suspect]
     Active Substance: OCRELIZUMAB
     Indication: Multiple sclerosis
     Dosage: YES
     Route: 042
     Dates: start: 202112, end: 202205

REACTIONS (2)
  - Urinary tract infection [Recovered/Resolved]
  - Fungal infection [Recovered/Resolved]
